FAERS Safety Report 15301448 (Version 1)
Quarter: 2018Q3

REPORT INFORMATION
  Report Type: Spontaneous
  Country: US (occurrence: US)
  Receive Date: 20180821
  Receipt Date: 20180821
  Transmission Date: 20181010
  Serious: No
  Sender: FDA-Public Use
  Company Number: US-SA-2018SA225742

PATIENT

DRUGS (3)
  1. ARAVA [Suspect]
     Active Substance: LEFLUNOMIDE
     Dosage: UNKNOWN
     Dates: start: 2017
  2. REMICADE [Concomitant]
     Active Substance: INFLIXIMAB
     Dosage: UNKNOWN
     Dates: start: 2017
  3. HUMIRA [Concomitant]
     Active Substance: ADALIMUMAB
     Dosage: UNKNOWN
     Dates: start: 2017, end: 201806

REACTIONS (1)
  - Drug ineffective [Unknown]
